FAERS Safety Report 10477283 (Version 1)
Quarter: 2014Q3

REPORT INFORMATION
  Report Type: Spontaneous
  Country: GB (occurrence: None)
  Receive Date: 20140923
  Receipt Date: 20140923
  Transmission Date: 20150326
  Serious: Yes (Hospitalization)
  Sender: FDA-Public Use
  Company Number: GB-H14001-14-00655

PATIENT
  Age: 41 Year
  Sex: Male

DRUGS (12)
  1. MELPHALAN (MELPHALAN) (UNKNOWN) (MELPHALAN) [Concomitant]
  2. VANCOMYCIN (VANCOMYCIN) (UNKNOWN) (VANCOMYCIN) [Concomitant]
  3. OXYNORM (OXYCODONE HYDROCHLORIDE) (UNKNOWN) (OXYCODONE HYDROCHLORIDE) [Concomitant]
  4. AMITRIPTYLIN [Concomitant]
     Active Substance: AMITRIPTYLINE
  5. DALTEPARIN [Concomitant]
     Active Substance: DALTEPARIN
  6. LACTULOSE (LACTULOSE) (UNKNOWN) (LACTULOSE) [Concomitant]
  7. MEROPENEM (MEROPENEM) (UNKNOWN) (MEROPENEM) [Concomitant]
  8. PARACETAMOL (PARACETAMOL) (UNKNOWN) (PARACETAMOL) [Concomitant]
  9. DIET SUPPLEMENT (ALL OTHER THERAPEUTICS PRODUCTS) (UNKNOWN) [Concomitant]
  10. COAMOXICLAV [Suspect]
     Active Substance: AMOXICILLIN\CLAVULANIC ACID
     Indication: SKIN INFECTION
     Dosage: 1500 MG (500 MG, 3 IN 1 D), ORAL
     Route: 048
     Dates: start: 20140828, end: 20140829
  11. TRAMADOL (TRAMADOL) (UNKNOWN) (TRAMADOL) [Concomitant]
  12. VITAMIN C [Concomitant]
     Active Substance: ASCORBIC ACID

REACTIONS (4)
  - Drug-induced liver injury [None]
  - Sepsis [None]
  - Thrombosis [None]
  - Hepatitis [None]

NARRATIVE: CASE EVENT DATE: 20140829
